FAERS Safety Report 17428290 (Version 1)
Quarter: 2020Q1

REPORT INFORMATION
  Report Type: Spontaneous
  Country: US (occurrence: US)
  Receive Date: 20200218
  Receipt Date: 20200218
  Transmission Date: 20200409
  Serious: No
  Sender: FDA-Public Use
  Company Number: US-GW PHARMA-202002USGW00521

PATIENT

DRUGS (2)
  1. EPIDIOLEX [Suspect]
     Active Substance: CANNABIDIOL
     Indication: EPILEPSY
     Dosage: 30 MILLIGRAM, BID
     Route: 048
     Dates: start: 20190801
  2. EPIDIOLEX [Suspect]
     Active Substance: CANNABIDIOL
     Dosage: 40 MILLIGRAM, BID
     Route: 048

REACTIONS (3)
  - Vomiting [Unknown]
  - Drug intolerance [Unknown]
  - Retching [Unknown]

NARRATIVE: CASE EVENT DATE: 2020
